FAERS Safety Report 6108511-8 (Version None)
Quarter: 2009Q1

REPORT INFORMATION
  Report Type: 
  Country: None (occurrence: None)
  Receive Date: 20090309
  Receipt Date: 20090225
  Transmission Date: 20090719
  Serious: Yes (Other)
  Sender: FDA-Public Use
  Company Number: JP-PFIZER INC-2008100410

PATIENT

DRUGS (4)
  1. FARMORUBICIN [Suspect]
     Indication: HEPATIC NEOPLASM MALIGNANT
     Dosage: 60 MG
     Route: 013
     Dates: start: 20080423, end: 20080423
  2. LIPIODOL [Suspect]
     Indication: HEPATIC NEOPLASM MALIGNANT
     Dosage: 13 ML
     Route: 013
     Dates: start: 20080423, end: 20080423
  3. ATARAX [Concomitant]
     Dosage: UNK
     Route: 042
     Dates: start: 20080423, end: 20080423
  4. CEFOTIAM HYDROCHLORIDE [Concomitant]
     Dosage: UNK
     Route: 042
     Dates: start: 20080423, end: 20080423

REACTIONS (2)
  - ACUTE RESPIRATORY DISTRESS SYNDROME [None]
  - PULMONARY EMBOLISM [None]
